APPROVED DRUG PRODUCT: MELPHALAN HYDROCHLORIDE
Active Ingredient: MELPHALAN HYDROCHLORIDE
Strength: EQ 50MG BASE/VIAL
Dosage Form/Route: INJECTABLE;INJECTION
Application: A215024 | Product #001 | TE Code: AP
Applicant: HETERO LABS LTD
Approved: May 23, 2024 | RLD: No | RS: No | Type: RX